FAERS Safety Report 18277376 (Version 2)
Quarter: 2020Q3

REPORT INFORMATION
  Report Type: Report from Study
  Country: None (occurrence: CA)
  Receive Date: 20200917
  Receipt Date: 20200928
  Transmission Date: 20201103
  Serious: Yes (Other)
  Sender: FDA-Public Use
  Company Number: CA-ABBVIE-20K-028-3567757-00

PATIENT
  Age: 63 Year
  Sex: Female

DRUGS (1)
  1. RINVOQ [Suspect]
     Active Substance: UPADACITINIB
     Indication: RHEUMATOID ARTHRITIS
     Route: 048
     Dates: start: 20200804

REACTIONS (7)
  - Haemorrhage [Unknown]
  - Skin laceration [Unknown]
  - Oral herpes [Unknown]
  - Coagulation time prolonged [Unknown]
  - Wound haemorrhage [Unknown]
  - Skin laceration [Unknown]
  - Oral herpes [Recovered/Resolved]

NARRATIVE: CASE EVENT DATE: 202008
